FAERS Safety Report 26026449 (Version 1)
Quarter: 2025Q4

REPORT INFORMATION
  Report Type: Spontaneous
  Country: EU (occurrence: EU)
  Receive Date: 20251111
  Receipt Date: 20251111
  Transmission Date: 20260117
  Serious: Yes (Life-Threatening, Disabling, Other)
  Sender: INSUD PHARMA
  Company Number: None

PATIENT
  Age: 39 Year
  Sex: Female

DRUGS (6)
  1. TRIPTORELIN PAMOATE [Suspect]
     Active Substance: TRIPTORELIN PAMOATE
     Indication: Assisted fertilisation
     Route: 030
     Dates: start: 20250820, end: 20250820
  2. ESTRADIOL [Suspect]
     Active Substance: ESTRADIOL
     Indication: Assisted fertilisation
     Dosage: 3 PATCHS UN JOUR SUR 3 SEMAINE 1 ? SEMAINE 40
     Route: 062
     Dates: start: 20250731
  3. PROGESTERONE [Suspect]
     Active Substance: PROGESTERONE
     Indication: Assisted fertilisation
     Dosage: 4 DOSAGE FORM, QD
     Route: 048
     Dates: start: 20250731
  4. ASPIRIN LYSINE [Suspect]
     Active Substance: ASPIRIN LYSINE
     Indication: Assisted fertilisation
     Route: 048
     Dates: start: 20250731
  5. TRANDATE [Suspect]
     Active Substance: LABETALOL HYDROCHLORIDE
     Indication: Hypertension
     Dosage: 1 DOSAGE FORM, QD
     Route: 048
     Dates: start: 2024
  6. FOLIC ACID [Suspect]
     Active Substance: FOLIC ACID
     Indication: Assisted fertilisation
     Dosage: 1 DOSAGE FORM, QD
     Route: 048
     Dates: start: 2024

REACTIONS (1)
  - Hepatitis fulminant [Recovered/Resolved with Sequelae]

NARRATIVE: CASE EVENT DATE: 20250923
